FAERS Safety Report 7228360-7 (Version None)
Quarter: 2011Q1

REPORT INFORMATION
  Report Type: 
  Country: None (occurrence: None)
  Receive Date: 20110114
  Receipt Date: 20110112
  Transmission Date: 20110831
  Serious: Yes (Death)
  Sender: FDA-Public Use
  Company Number: US-AMGEN-USASP2011002238

PATIENT

DRUGS (4)
  1. CORTICOSTEROIDS [Concomitant]
     Dosage: UNK
     Dates: start: 20100614
  2. IMMUNOGLOBULINS [Concomitant]
     Dosage: UNK
     Dates: start: 20100614
  3. RITUXIMAB [Concomitant]
     Dosage: UNK UNK, QWK
     Dates: start: 20100615, end: 20100705
  4. NPLATE [Suspect]
     Indication: THROMBOCYTOPENIA
     Dates: start: 20100621

REACTIONS (1)
  - DEATH [None]
